FAERS Safety Report 7521417-2 (Version None)
Quarter: 2011Q2

REPORT INFORMATION
  Report Type: 
  Country: None (occurrence: None)
  Receive Date: 20110603
  Receipt Date: 20110526
  Transmission Date: 20111010
  Serious: No
  Sender: FDA-Public Use
  Company Number: BR-JNJFOC-20110600122

PATIENT
  Sex: Male

DRUGS (1)
  1. DURAGESIC-100 [Suspect]
     Indication: PAIN IN EXTREMITY
     Route: 062
     Dates: start: 20110520, end: 20110524

REACTIONS (3)
  - PRODUCT QUALITY ISSUE [None]
  - MEDICATION ERROR [None]
  - DRUG INEFFECTIVE [None]
